FAERS Safety Report 10905562 (Version 3)
Quarter: 2015Q4

REPORT INFORMATION
  Report Type: Report from Study
  Country: JP (occurrence: JP)
  Receive Date: 20150311
  Receipt Date: 20151029
  Transmission Date: 20160304
  Serious: Yes (Death)
  Sender: FDA-Public Use
  Company Number: JP-ASTRAZENECA-2015SE22909

PATIENT
  Age: 23484 Day
  Sex: Male
  Weight: 97.9 kg

DRUGS (12)
  1. AVAPRO [Suspect]
     Active Substance: IRBESARTAN
     Route: 065
  2. ITOROL [Concomitant]
     Active Substance: ISOSORBIDE MONONITRATE
     Route: 048
  3. FORXIGA [Suspect]
     Active Substance: DAPAGLIFLOZIN
     Indication: TYPE 2 DIABETES MELLITUS
     Route: 048
     Dates: start: 20141004, end: 20141018
  4. FEBURIC [Concomitant]
     Active Substance: FEBUXOSTAT
     Route: 048
  5. ATORVASTATIN [Concomitant]
     Active Substance: ATORVASTATIN
     Route: 048
  6. DAIKENCHUTO [Concomitant]
     Active Substance: HERBALS
     Route: 048
  7. BAYASPIRIN [Concomitant]
     Active Substance: ASPIRIN
     Route: 048
  8. MICARDIS [Suspect]
     Active Substance: TELMISARTAN
     Route: 065
  9. FAMOTIDINE. [Concomitant]
     Active Substance: FAMOTIDINE
     Route: 048
  10. NIFEDIPINE CR [Concomitant]
     Active Substance: NIFEDIPINE
     Dosage: SUSTAINED RELEASE TABLET, 20 MG TWO / DAY
     Route: 048
  11. GASMOTIN [Concomitant]
     Active Substance: MOSAPRIDE CITRATE
     Route: 048
  12. ALBENDAZOLE [Concomitant]
     Active Substance: ALBENDAZOLE
     Route: 048

REACTIONS (1)
  - Cardiac failure acute [Fatal]

NARRATIVE: CASE EVENT DATE: 20141105
